APPROVED DRUG PRODUCT: FELDENE
Active Ingredient: PIROXICAM
Strength: 10MG
Dosage Form/Route: CAPSULE;ORAL
Application: N018147 | Product #002 | TE Code: AB
Applicant: PFIZER LABORATORIES DIV PFIZER INC
Approved: Apr 6, 1982 | RLD: Yes | RS: No | Type: RX